FAERS Safety Report 7712951-0 (Version None)
Quarter: 2011Q3

REPORT INFORMATION
  Report Type: 
  Country: None (occurrence: None)
  Receive Date: 20110826
  Receipt Date: 20110824
  Transmission Date: 20111222
  Serious: Yes (Hospitalization, Other)
  Sender: FDA-Public Use
  Company Number: PHFR2011IE02232

PATIENT
  Sex: Female
  Weight: 88.9 kg

DRUGS (44)
  1. CLOZAPINE [Suspect]
     Dosage: 250 MG/DAY
     Route: 048
     Dates: start: 20040107
  2. CLOZAPINE [Suspect]
     Dosage: 112.5 MG/DAY
     Route: 048
  3. CEFACLOR [Concomitant]
  4. RISPERIDONE [Concomitant]
     Dosage: 2 MG NOCTE
  5. CLOZAPINE [Suspect]
     Dosage: 250 MG/DAY
     Route: 048
     Dates: start: 19990830
  6. AMISULPRIDE [Suspect]
     Dosage: 200 MG, BID
  7. VALPROIC ACID [Concomitant]
     Dosage: 1600 MG/DAY
     Route: 048
     Dates: start: 20040126
  8. DIAZEPAM [Concomitant]
     Dosage: 5 MG, TID
  9. DIAZEPAM [Concomitant]
     Dosage: 10 MG, TID
  10. VALPROIC ACID [Concomitant]
     Dosage: 200 MG, BID
     Route: 048
     Dates: start: 19980407, end: 19981111
  11. VALPROIC ACID [Concomitant]
     Dosage: 1200 MG/DAY
     Route: 048
     Dates: start: 20040126
  12. CITALOPRAM HYDROBROMIDE [Concomitant]
     Dosage: 40 MG MANE
  13. SOLIAN [Concomitant]
     Dosage: 50 MG, BID
  14. SOLIAN [Concomitant]
     Dosage: 200 MG MANE + 300 MG NOCTE
  15. CLOZAPINE [Suspect]
     Dosage: 25 MG, BID
     Route: 048
     Dates: start: 19980101, end: 20040101
  16. CLOZAPINE [Suspect]
     Dosage: 75 MG, UNK
     Route: 048
     Dates: start: 19981111
  17. CLOZAPINE [Suspect]
     Dosage: 25 MG, BID
     Route: 048
     Dates: start: 20040401, end: 20040501
  18. CLOZAPINE [Suspect]
     Dosage: 25 MG MANE + 62.5 MG NOCTE
     Route: 048
     Dates: start: 20040126
  19. CLOZAPINE [Suspect]
     Dosage: 12.5 MG MANE + 25 MG NOCTE
     Route: 048
  20. CRESTOR [Concomitant]
     Dosage: 10 MG/DAY
     Route: 048
     Dates: start: 20090901
  21. RISPERIDONE [Concomitant]
     Dosage: 3 MG NOCTE
  22. CLOZAPINE [Suspect]
     Dosage: 50 MG/DAY
     Route: 048
     Dates: start: 19990407, end: 20040101
  23. CLOZAPINE [Suspect]
     Dosage: 75 MG/DAY
     Route: 048
  24. CLOZAPINE [Suspect]
     Dosage: 12.5 MG MANE + 75 MG NOCTE
     Route: 048
  25. AMISULPRIDE [Suspect]
     Dosage: 100 MG, BID
  26. VALPROIC ACID [Concomitant]
     Dosage: 1000 MG/DAY
     Route: 048
  27. SOLIAN [Concomitant]
     Dosage: 400 MG, BID
  28. CLOZAPINE [Suspect]
     Dosage: 175 MG
     Dates: start: 19971111
  29. CLOZAPINE [Suspect]
     Dosage: 100 MG
     Route: 048
  30. CLOZAPINE [Suspect]
     Dosage: 25 MG MANE + 75 MG NOCTE
     Route: 048
  31. CLOZAPINE [Suspect]
     Dosage: 25 MG MANE + 100 MG NOCTE
     Route: 048
  32. CLOZAPINE [Suspect]
     Dosage: 12.5 MG MANE + 50 MG NOCTE
     Route: 048
  33. CLOZAPINE [Suspect]
     Dosage: UNK
     Route: 048
     Dates: start: 20060501
  34. AMISULPRIDE [Suspect]
     Indication: SCHIZOPHRENIA
     Dosage: 50 MG, BID
  35. VALPROIC ACID [Concomitant]
     Dosage: 2.4 G
     Route: 048
     Dates: start: 20040126
  36. AKINETON [Concomitant]
     Dosage: 2 MG, TID
  37. RISPERIDONE [Concomitant]
     Dosage: 1 MG NOCTE
  38. CLOZAPINE [Suspect]
     Dosage: 100 MG/DAY
     Route: 048
  39. VALPROIC ACID [Concomitant]
     Dosage: 200 MG, BID
     Route: 048
  40. CYMBALTA [Concomitant]
     Dosage: 120 MG/DAY
     Route: 048
     Dates: start: 20100101
  41. DIAZEPAM [Concomitant]
     Dosage: 5 MG, BID
  42. DULOXETIME HYDROCHLORIDE [Concomitant]
     Dosage: 60 MG, UNK
  43. VALPROATE SODIUM [Concomitant]
     Dosage: 200 MG, BID
     Dates: start: 19980407
  44. VALPROATE SODIUM [Concomitant]
     Dosage: 600 MG MANE AND NOCTE AND 200 MG AT 6.00 PM

REACTIONS (22)
  - SENSORY DISTURBANCE [None]
  - DYSPHORIA [None]
  - TREMOR [None]
  - FALL [None]
  - EAR INFECTION [None]
  - CONFUSIONAL STATE [None]
  - HYPERHIDROSIS [None]
  - LOSS OF CONSCIOUSNESS [None]
  - BALANCE DISORDER [None]
  - DIZZINESS [None]
  - GAIT DISTURBANCE [None]
  - DIARRHOEA [None]
  - NAUSEA [None]
  - INFLUENZA [None]
  - DECREASED INTEREST [None]
  - DEPRESSED MOOD [None]
  - ASTHENIA [None]
  - PARANOIA [None]
  - DEPRESSION [None]
  - SCHIZOPHRENIA [None]
  - CONVULSION [None]
  - SLEEP DISORDER [None]
